FAERS Safety Report 17763527 (Version 1)
Quarter: 2020Q2

REPORT INFORMATION
  Report Type: Spontaneous
  Country: PL (occurrence: PL)
  Receive Date: 20200509
  Receipt Date: 20200509
  Transmission Date: 20200714
  Serious: Yes (Other)
  Sender: FDA-Public Use
  Company Number: PL-TEVA-2020-PL-1232771

PATIENT
  Age: 44 Year
  Sex: Male
  Weight: 100 kg

DRUGS (1)
  1. EQUORAL [Suspect]
     Active Substance: CYCLOSPORINE
     Indication: PSORIATIC ARTHROPATHY
     Dosage: DOSE: 300; DOSE UNIT: NOT SPECIFIED
     Route: 048
     Dates: start: 20170321, end: 20170421

REACTIONS (2)
  - Glomerular filtration rate decreased [Unknown]
  - Blood creatinine increased [Unknown]

NARRATIVE: CASE EVENT DATE: 20170421
